FAERS Safety Report 5513952-3 (Version None)
Quarter: 2007Q4

REPORT INFORMATION
  Report Type: 
  Country: None (occurrence: None)
  Receive Date: 20071113
  Receipt Date: 20071108
  Transmission Date: 20080405
  Serious: Yes (Life-Threatening, Hospitalization, Other)
  Sender: FDA-Public Use
  Company Number: US-BRISTOL-MYERS SQUIBB COMPANY-13975941

PATIENT
  Age: 49 Year
  Sex: Female
  Weight: 47 kg

DRUGS (13)
  1. CYTOXAN [Suspect]
     Indication: BREAST CANCER
     Dates: start: 20070712, end: 20070712
  2. TAXOTERE [Suspect]
     Indication: BREAST CANCER
     Dosage: 21-JUL-2007 - 75 MG/M2
     Route: 042
     Dates: start: 20070510, end: 20070823
  3. ADRIAMYCIN PFS [Suspect]
     Indication: BREAST CANCER
     Dates: start: 20070712, end: 20070712
  4. NEULASTA [Concomitant]
     Dates: start: 20070713, end: 20070713
  5. OXYCONTIN [Concomitant]
  6. FENTANYL CITRATE [Concomitant]
     Route: 062
  7. PARACETAMOL [Concomitant]
  8. PERCOCET [Concomitant]
  9. WARFARIN SODIUM [Concomitant]
  10. PROTONIX [Concomitant]
  11. FOLATE [Concomitant]
  12. VITAMIN B COMPLEX CAP [Concomitant]
  13. VITAMIN B-12 [Concomitant]

REACTIONS (6)
  - FEBRILE NEUTROPENIA [None]
  - HAEMOGLOBIN DECREASED [None]
  - HYPOTENSION [None]
  - NEUTROPHIL COUNT DECREASED [None]
  - PNEUMONIA [None]
  - WHITE BLOOD CELL COUNT DECREASED [None]
